APPROVED DRUG PRODUCT: VANCOMYCIN HYDROCHLORIDE
Active Ingredient: VANCOMYCIN HYDROCHLORIDE
Strength: EQ 500MG BASE/VIAL
Dosage Form/Route: INJECTABLE;INJECTION
Application: A062911 | Product #001 | TE Code: AP
Applicant: HOSPIRA INC
Approved: Aug 4, 1988 | RLD: No | RS: Yes | Type: RX